FAERS Safety Report 6674112-6 (Version None)
Quarter: 2010Q1

REPORT INFORMATION
  Report Type: 
  Country: None (occurrence: None)
  Receive Date: 20100329
  Receipt Date: 20091219
  Transmission Date: 20100710
  Serious: Yes (Other)
  Sender: FDA-Public Use
  Company Number: 2009314912

PATIENT
  Age: 24 Year
  Sex: Female
  Weight: 72.6 kg

DRUGS (2)
  1. GEODON [Suspect]
     Indication: BIPOLAR DISORDER
     Dosage: 40 MG, 1X/DAY, ORAL
     Route: 048
     Dates: start: 20090101
  2. LITHIUM CARBONATE [Concomitant]

REACTIONS (1)
  - TARDIVE DYSKINESIA [None]
